FAERS Safety Report 12297979 (Version 1)
Quarter: 2016Q2

REPORT INFORMATION
  Report Type: Other
  Country: FR (occurrence: FR)
  Receive Date: 20160422
  Receipt Date: 20160422
  Transmission Date: 20160815
  Serious: Yes (Life-Threatening)
  Sender: FDA-Public Use
  Company Number: FR-HQ SPECIALTY-FR-2016INT000198

PATIENT
  Age: 3 Year
  Sex: Female
  Weight: 13 kg

DRUGS (3)
  1. METHOTREXATE SODIUM. [Suspect]
     Active Substance: METHOTREXATE SODIUM
     Indication: JUVENILE IDIOPATHIC ARTHRITIS
     Dosage: 1.0714 MG (7.5 MG, ON SATURDAYS IN THE MORNING)
     Route: 048
     Dates: start: 20151009, end: 20160319
  2. ENBREL [Suspect]
     Active Substance: ETANERCEPT
     Indication: JUVENILE IDIOPATHIC ARTHRITIS
     Dosage: 0.4 MG/KG, 1 W
     Route: 058
     Dates: start: 20160303, end: 20160319
  3. NAPROXEN. [Suspect]
     Active Substance: NAPROXEN
     Indication: ARTHRITIS
     Dosage: 25 MG/KG, 1 D
     Route: 048
     Dates: start: 20150907, end: 20160319

REACTIONS (3)
  - Product use issue [Unknown]
  - Hepatocellular injury [Recovering/Resolving]
  - Drug administered to patient of inappropriate age [Unknown]

NARRATIVE: CASE EVENT DATE: 20151009
